FAERS Safety Report 9286126 (Version 1)
Quarter: 2013Q2

REPORT INFORMATION
  Report Type: Spontaneous
  Country: US (occurrence: US)
  Receive Date: 20130513
  Receipt Date: 20130513
  Transmission Date: 20140414
  Serious: Yes (Disabling, Other)
  Sender: FDA-Public Use
  Company Number: US-009507513-1305USA006468

PATIENT
  Sex: Female

DRUGS (1)
  1. NUVARING [Suspect]
     Dosage: UNK
     Dates: start: 20120515

REACTIONS (1)
  - Pulmonary embolism [Unknown]
